FAERS Safety Report 13264794 (Version 3)
Quarter: 2017Q1

REPORT INFORMATION
  Report Type: Report from Study
  Country: CN (occurrence: CN)
  Receive Date: 20170223
  Receipt Date: 20170302
  Transmission Date: 20170428
  Serious: Yes (Congenital Anomaly, Other)
  Sender: FDA-Public Use
  Company Number: CN-VIIV HEALTHCARE LIMITED-CN2017GSK026012

PATIENT
  Sex: Male
  Weight: 3.7 kg

DRUGS (3)
  1. LAMIVUDINE. [Suspect]
     Active Substance: LAMIVUDINE
     Indication: HEPATITIS B
     Dosage: UNK, U
     Route: 064
  2. FOLATE [Concomitant]
     Active Substance: FOLATE SODIUM
  3. LEVOTHYROXINE SODIUM. [Concomitant]
     Active Substance: LEVOTHYROXINE SODIUM

REACTIONS (2)
  - Foetal exposure during pregnancy [Unknown]
  - Cerebral palsy [Recovered/Resolved]

NARRATIVE: CASE EVENT DATE: 201004
